FAERS Safety Report 11032281 (Version 1)
Quarter: 2015Q2

REPORT INFORMATION
  Report Type: Spontaneous
  Country: US (occurrence: None)
  Receive Date: 20150414
  Receipt Date: 20150414
  Transmission Date: 20150821
  Serious: Yes (Other)
  Sender: FDA-Public Use
  Company Number: VIT-2015-00682

PATIENT
  Age: 42 Year
  Sex: Male
  Weight: 138 kg

DRUGS (4)
  1. SENSIPAR (CINACALCET HYDROCHLORIDE) [Concomitant]
  2. AMLODIPINE [Concomitant]
     Active Substance: AMLODIPINE BESYLATE
  3. MINOXIDIL. [Concomitant]
     Active Substance: MINOXIDIL
  4. VELPHORO [Suspect]
     Active Substance: FERRIC OXYHYDROXIDE
     Indication: HYPERPHOSPHATAEMIA
     Dates: start: 20150128, end: 20150313

REACTIONS (2)
  - Constipation [None]
  - Haemorrhoids [None]

NARRATIVE: CASE EVENT DATE: 20150128
